FAERS Safety Report 4691392-7 (Version None)
Quarter: 2005Q2

REPORT INFORMATION
  Report Type: 
  Country: None (occurrence: None)
  Receive Date: 20050615
  Receipt Date: 20050608
  Transmission Date: 20051028
  Serious: Yes (Other)
  Sender: FDA-Public Use
  Company Number: JP-MERCK-0506USA01807

PATIENT
  Age: 62 Year
  Sex: Male

DRUGS (5)
  1. PRIMAXIN [Suspect]
     Route: 042
  2. MINOCYCLINE HCL [Concomitant]
     Route: 065
  3. ADALAT [Concomitant]
     Route: 048
  4. PEPCID [Concomitant]
     Route: 065
  5. DIAZEPAM [Concomitant]
     Route: 065

REACTIONS (2)
  - CONVULSION [None]
  - RESPIRATORY ARREST [None]
